FAERS Safety Report 6912630-3 (Version None)
Quarter: 2010Q3

REPORT INFORMATION
  Report Type: 
  Country: None (occurrence: None)
  Receive Date: 20100806
  Receipt Date: 20081010
  Transmission Date: 20110219
  Serious: No
  Sender: FDA-Public Use
  Company Number: US-PFIZER INC-2008062747

PATIENT
  Sex: Male
  Weight: 77.3 kg

DRUGS (1)
  1. DETROL LA [Suspect]
     Indication: POLLAKIURIA
     Dates: start: 20080401

REACTIONS (2)
  - MICTURITION URGENCY [None]
  - POLLAKIURIA [None]
